FAERS Safety Report 18844083 (Version 1)
Quarter: 2021Q1

REPORT INFORMATION
  Report Type: Report from Study
  Country: US (occurrence: US)
  Receive Date: 20210203
  Receipt Date: 20210203
  Transmission Date: 20210419
  Serious: No
  Sender: FDA-Public Use
  Company Number: US-EXELIXIS-CABO-20028769

PATIENT
  Sex: Male

DRUGS (1)
  1. CABOMETYX [Suspect]
     Active Substance: CABOZANTINIB S-MALATE
     Indication: RENAL CANCER
     Dosage: 60 MG

REACTIONS (9)
  - Fall [Unknown]
  - Decreased appetite [Unknown]
  - Product dose omission issue [Unknown]
  - Dementia [Unknown]
  - Thrombosis [Unknown]
  - Blood creatinine increased [Unknown]
  - Peripheral swelling [Unknown]
  - Malignant neoplasm progression [Unknown]
  - Hip fracture [Unknown]
